FAERS Safety Report 25752304 (Version 1)
Quarter: 2025Q3

REPORT INFORMATION
  Report Type: Spontaneous
  Country: EU (occurrence: EU)
  Receive Date: 20250902
  Receipt Date: 20250902
  Transmission Date: 20251021
  Serious: Yes (Other)
  Sender: IPSEN BIOPHARMACEUTICALS, INC.
  Company Number: None

PATIENT
  Age: 38 Year
  Sex: Female
  Weight: 54 kg

DRUGS (1)
  1. DYSPORT [Suspect]
     Active Substance: ABOBOTULINUMTOXINA
     Indication: Skin wrinkling
     Dates: start: 20250813, end: 20250813

REACTIONS (7)
  - Syncope [Recovering/Resolving]
  - Malaise [Recovering/Resolving]
  - Vertigo [Recovering/Resolving]
  - Heart rate increased [Recovering/Resolving]
  - Palpitations [Recovering/Resolving]
  - Asthenia [Recovering/Resolving]
  - Anxiety [Recovering/Resolving]
